FAERS Safety Report 20871984 (Version 1)
Quarter: 2022Q2

REPORT INFORMATION
  Report Type: Spontaneous
  Country: US (occurrence: None)
  Receive Date: 20220524
  Receipt Date: 20220524
  Transmission Date: 20220721
  Serious: Yes (Disabling)
  Sender: FDA-Public Use
  Company Number: None

PATIENT
  Age: 0 Year
  Sex: Male
  Weight: 1.8 kg

DRUGS (1)
  1. YUTOPAR [Suspect]
     Active Substance: RITODRINE HYDROCHLORIDE
     Indication: Premature labour
     Dosage: OTHER FREQUENCY : EVERY 3 HOURS;?
     Route: 048
     Dates: start: 19890527, end: 19890612

REACTIONS (5)
  - Mental disorder [None]
  - Antisocial behaviour [None]
  - Developmental delay [None]
  - Autism spectrum disorder [None]
  - Maternal drugs affecting foetus [None]

NARRATIVE: CASE EVENT DATE: 19890612
